FAERS Safety Report 6914565-9 (Version None)
Quarter: 2010Q3

REPORT INFORMATION
  Report Type: 
  Country: None (occurrence: None)
  Receive Date: 20100809
  Receipt Date: 20100729
  Transmission Date: 20110219
  Serious: Yes (Hospitalization, Other)
  Sender: FDA-Public Use
  Company Number: JP-JNJFOC-20100708511

PATIENT
  Sex: Male

DRUGS (8)
  1. LEVOFLOXACIN [Suspect]
     Indication: PANCREATIC LEAK
     Route: 048
  2. LEVOFLOXACIN [Suspect]
     Indication: GASTRIC CANCER
     Route: 048
  3. LEVOFLOXACIN [Suspect]
     Indication: INFLAMMATION
     Route: 048
  4. LEVOFLOXACIN [Suspect]
     Indication: PYREXIA
     Route: 048
  5. PAZUFLOXACIN [Suspect]
     Indication: SEPSIS
     Route: 042
  6. IMIPENEM AND CILASTATIN SODIUM [Concomitant]
     Indication: INFLAMMATION
     Route: 065
  7. IMIPENEM AND CILASTATIN SODIUM [Concomitant]
     Indication: PYREXIA
     Route: 065
  8. TEICOPLANIN [Concomitant]
     Route: 042

REACTIONS (3)
  - ACUTE RESPIRATORY DISTRESS SYNDROME [None]
  - DISSEMINATED INTRAVASCULAR COAGULATION [None]
  - THROMBOCYTOPENIA [None]
